FAERS Safety Report 22314588 (Version 1)
Quarter: 2023Q2

REPORT INFORMATION
  Report Type: Spontaneous
  Country: US (occurrence: None)
  Receive Date: 20230512
  Receipt Date: 20230512
  Transmission Date: 20230722
  Serious: No
  Sender: FDA-Public Use
  Company Number: None

PATIENT

DRUGS (3)
  1. ADRENALIN [Suspect]
     Active Substance: EPINEPHRINE
  2. BENADRYL [Concomitant]
     Active Substance: DIPHENHYDRAMINE HYDROCHLORIDE
  3. SOLU-MEDROL [Concomitant]

REACTIONS (3)
  - Product dispensing error [None]
  - Incorrect route of product administration [None]
  - Incorrect dose administered [None]
